APPROVED DRUG PRODUCT: MACITENTAN
Active Ingredient: MACITENTAN
Strength: 10MG
Dosage Form/Route: TABLET;ORAL
Application: A211107 | Product #001
Applicant: TORRENT PHARMACEUTICALS LTD
Approved: Aug 5, 2024 | RLD: No | RS: No | Type: DISCN